FAERS Safety Report 16053797 (Version 1)
Quarter: 2019Q1

REPORT INFORMATION
  Report Type: Spontaneous
  Country: NO (occurrence: NO)
  Receive Date: 20190308
  Receipt Date: 20190308
  Transmission Date: 20190418
  Serious: Yes (Other)
  Sender: FDA-Public Use
  Company Number: NO-PFIZER INC-2019098005

PATIENT
  Sex: Female

DRUGS (1)
  1. FRAGMIN [Suspect]
     Active Substance: DALTEPARIN SODIUM
     Indication: FACTOR V LEIDEN MUTATION
     Dosage: UNK
     Route: 058

REACTIONS (4)
  - Injection site swelling [Unknown]
  - Skin reaction [Unknown]
  - Foetal death [Unknown]
  - Foetal placental thrombosis [Unknown]
